FAERS Safety Report 6211254-3 (Version None)
Quarter: 2009Q2

REPORT INFORMATION
  Report Type: 
  Country: None (occurrence: None)
  Receive Date: 20090602
  Receipt Date: 20090527
  Transmission Date: 20091009
  Serious: Yes (Other)
  Sender: FDA-Public Use
  Company Number: PHHY2009FI20931

PATIENT
  Sex: Female

DRUGS (1)
  1. EMSELEX EXTENDED RELEASE [Suspect]
     Dosage: 7.5 MG, UNK
     Route: 048

REACTIONS (1)
  - FEELING ABNORMAL [None]
